FAERS Safety Report 8807040 (Version 4)
Quarter: 2014Q2

REPORT INFORMATION
  Report Type: Spontaneous
  Country: US (occurrence: US)
  Receive Date: 20120925
  Receipt Date: 20140430
  Transmission Date: 20141212
  Serious: Yes (Hospitalization)
  Sender: FDA-Public Use
  Company Number: US-ASTRAZENECA-2012SE71064

PATIENT
  Age: 54 Year
  Sex: Male
  Weight: 68 kg

DRUGS (2)
  1. SYMBICORT PMDI [Suspect]
     Indication: ASTHMA
     Dosage: 160/4.5, 2 PUFFS TWO TIMES A DAY
     Route: 055
  2. ALBUTEROL [Concomitant]

REACTIONS (11)
  - Malaise [Unknown]
  - Dyspnoea [Unknown]
  - Influenza [Unknown]
  - Upper respiratory tract infection [Unknown]
  - Weight decreased [Unknown]
  - Respiratory disorder [Unknown]
  - Multiple allergies [Not Recovered/Not Resolved]
  - Condition aggravated [Unknown]
  - Blood pressure increased [Unknown]
  - Intentional product misuse [Unknown]
  - Drug dose omission [Unknown]
